FAERS Safety Report 14652313 (Version 2)
Quarter: 2018Q1

REPORT INFORMATION
  Report Type: Spontaneous
  Country: US (occurrence: US)
  Receive Date: 20180318
  Receipt Date: 20180331
  Transmission Date: 20180509
  Serious: No
  Sender: FDA-Public Use
  Company Number: US-JNJFOC-20180133058

PATIENT
  Age: 44 Year
  Sex: Female

DRUGS (2)
  1. TREMFYA [Suspect]
     Active Substance: GUSELKUMAB
     Indication: PSORIASIS
     Route: 065
     Dates: start: 20171101, end: 20171101
  2. CLOBETASOL [Concomitant]
     Active Substance: CLOBETASOL
     Route: 061
     Dates: start: 20170501

REACTIONS (1)
  - Rash [Recovered/Resolved]

NARRATIVE: CASE EVENT DATE: 20171102
